FAERS Safety Report 6258861-X (Version None)
Quarter: 2009Q3

REPORT INFORMATION
  Report Type: 
  Country: None (occurrence: None)
  Receive Date: 20090702
  Receipt Date: 20090626
  Transmission Date: 20100115
  Serious: No
  Sender: FDA-Public Use
  Company Number: C-09-0159-W

PATIENT
  Age: 73 Year
  Sex: Male
  Weight: 79.3795 kg

DRUGS (4)
  1. RANITIDINE [Suspect]
     Indication: DUODENOGASTRIC REFLUX
     Dosage: ONE P.O. H.S. 047
     Route: 048
     Dates: start: 20090618
  2. COREG [Concomitant]
  3. COZAAR [Concomitant]
  4. PLAVIX [Concomitant]

REACTIONS (3)
  - DIARRHOEA [None]
  - DRUG EFFECT DECREASED [None]
  - PRODUCT SUBSTITUTION ISSUE [None]
